FAERS Safety Report 6073863-4 (Version None)
Quarter: 2009Q1

REPORT INFORMATION
  Report Type: 
  Country: None (occurrence: None)
  Receive Date: 20090211
  Receipt Date: 20090130
  Transmission Date: 20090719
  Serious: Yes (Other)
  Sender: FDA-Public Use
  Company Number: BR-PFIZER INC-2009165351

PATIENT

DRUGS (4)
  1. DEPO-PROVERA [Suspect]
     Indication: OFF LABEL USE
     Dosage: 150 MG, SINGLE
     Dates: start: 20090126, end: 20090126
  2. DEPO-PROVERA [Suspect]
     Indication: UTERINE LEIOMYOMA
  3. SYNTHROID [Concomitant]
     Indication: HYPOTHYROIDISM
     Dosage: UNK
  4. NEXIUM [Concomitant]
     Dosage: UNK

REACTIONS (1)
  - ABORTION THREATENED [None]
